FAERS Safety Report 13346638 (Version 2)
Quarter: 2017Q1

REPORT INFORMATION
  Report Type: Spontaneous
  Country: CH (occurrence: CH)
  Receive Date: 20170317
  Receipt Date: 20170327
  Transmission Date: 20170428
  Serious: Yes (Death, Hospitalization)
  Sender: FDA-Public Use
  Company Number: CH-PFIZER INC-2017111319

PATIENT
  Age: 74 Year
  Sex: Male

DRUGS (24)
  1. CORDARONE [Suspect]
     Active Substance: AMIODARONE HYDROCHLORIDE
     Indication: ATRIAL FIBRILLATION
     Dosage: 200 MG, DAILY
     Route: 048
     Dates: start: 201612
  2. EUTHYROX [Concomitant]
     Active Substance: LEVOTHYROXINE SODIUM
     Dosage: UNK
  3. ANORO ELLIPTA [Concomitant]
     Active Substance: UMECLIDINIUM BROMIDE\VILANTEROL TRIFENATATE
     Dosage: UNK
  4. TRAMAL [Concomitant]
     Active Substance: TRAMADOL
     Dosage: UNK
  5. CRESTOR [Concomitant]
     Active Substance: ROSUVASTATIN CALCIUM
     Dosage: UNK
     Dates: end: 20170223
  6. NEBILET [Concomitant]
     Active Substance: NEBIVOLOL
     Dosage: UNK
  7. ESIDREX [Concomitant]
     Active Substance: HYDROCHLOROTHIAZIDE
     Dosage: UNK
  8. SINTROM [Interacting]
     Active Substance: ACENOCOUMAROL
     Indication: MITRAL VALVE REPLACEMENT
     Dosage: 1 MG, DAILY
     Route: 048
     Dates: end: 20170222
  9. ALENDRONATE [Concomitant]
     Active Substance: ALENDRONATE SODIUM
     Dosage: UNK
  10. LIQUEMINE [Interacting]
     Active Substance: HEPARIN SODIUM
     Indication: MITRAL VALVE REPLACEMENT
     Dosage: 1200 IU, EVERY HOUR
     Route: 041
     Dates: start: 20170224, end: 20170225
  11. TORASEMIDE [Concomitant]
     Active Substance: TORSEMIDE
     Dosage: UNK
  12. ANXIOLIT [Concomitant]
     Active Substance: OXAZEPAM
     Dosage: UNK
  13. ISOPHANE INSULIN [Concomitant]
     Active Substance: INSULIN NOS
     Dosage: UNK
  14. DAFALGAN [Concomitant]
     Active Substance: ACETAMINOPHEN
     Dosage: UNK
  15. FRAXIFORTE [Interacting]
     Active Substance: NADROPARIN CALCIUM
     Indication: MITRAL VALVE REPLACEMENT
     Dosage: 1 DF, UNK
     Route: 058
     Dates: start: 20170223, end: 20170223
  16. DANCOR [Concomitant]
     Active Substance: NICORANDIL
     Dosage: UNK
  17. NEXIUM [Concomitant]
     Active Substance: ESOMEPRAZOLE MAGNESIUM
     Dosage: UNK
     Dates: start: 20170224
  18. PREDNISONE. [Concomitant]
     Active Substance: PREDNISONE
     Indication: POLYMYALGIA RHEUMATICA
     Dosage: 15 MG, DAILY
     Dates: start: 201604
  19. PREDNISONE. [Concomitant]
     Active Substance: PREDNISONE
     Dosage: 40 MG, DAILY
     Dates: start: 20161220
  20. PREDNISONE. [Concomitant]
     Active Substance: PREDNISONE
     Dosage: 30 MG, DAILY
  21. INSPRA [Concomitant]
     Active Substance: EPLERENONE
     Dosage: UNK
  22. METFORMIN [Concomitant]
     Active Substance: METFORMIN HYDROCHLORIDE
     Dosage: UNK
  23. RELVAR ELLIPTA [Concomitant]
     Active Substance: FLUTICASONE FUROATE\VILANTEROL TRIFENATATE
     Dosage: UNK
     Dates: end: 20170223
  24. PANTOPRAZOL [Concomitant]
     Active Substance: PANTOPRAZOLE SODIUM
     Dosage: UNK
     Dates: start: 201611, end: 20170223

REACTIONS (9)
  - Subcutaneous haematoma [Not Recovered/Not Resolved]
  - Overdose [Fatal]
  - Headache [Not Recovered/Not Resolved]
  - Drug interaction [Fatal]
  - Spontaneous haematoma [Unknown]
  - Haemorrhagic stroke [Fatal]
  - Hemiplegia [Not Recovered/Not Resolved]
  - Epistaxis [Recovered/Resolved]
  - Depressed level of consciousness [Not Recovered/Not Resolved]

NARRATIVE: CASE EVENT DATE: 20170223
